FAERS Safety Report 7081046-4 (Version None)
Quarter: 2010Q4

REPORT INFORMATION
  Report Type: 
  Country: None (occurrence: None)
  Receive Date: 20101103
  Receipt Date: 20101023
  Transmission Date: 20110411
  Serious: Yes (Hospitalization, Other)
  Sender: FDA-Public Use
  Company Number: NL-ROCHE-723706

PATIENT
  Sex: Female

DRUGS (3)
  1. AVASTIN [Suspect]
     Indication: RECTAL CANCER METASTATIC
     Route: 042
     Dates: start: 20100501
  2. XELODA [Suspect]
     Indication: RECTAL CANCER METASTATIC
     Dosage: 1000 MG/M2 BID DAY 1-14 EVERY 3 WEEKS.
     Route: 048
     Dates: start: 20100501
  3. OXALIPLATIN [Concomitant]
     Indication: RECTAL CANCER METASTATIC

REACTIONS (3)
  - NECROTISING FASCIITIS [None]
  - PELVIC ABSCESS [None]
  - RECTAL PERFORATION [None]
